FAERS Safety Report 25099440 (Version 2)
Quarter: 2025Q2

REPORT INFORMATION
  Report Type: Report from Study
  Country: US (occurrence: US)
  Receive Date: 20250320
  Receipt Date: 20250526
  Transmission Date: 20250717
  Serious: No
  Sender: SUNOVION
  Company Number: US-SUMITOMO PHARMA SWITZERLAND GMBH-2025SPA002336

PATIENT

DRUGS (4)
  1. ORGOVYX [Suspect]
     Active Substance: RELUGOLIX
     Indication: Prostate cancer
     Route: 048
     Dates: start: 20250210, end: 20250210
  2. ORGOVYX [Suspect]
     Active Substance: RELUGOLIX
     Dosage: 120 MG, QD
     Route: 048
     Dates: start: 20250211
  3. CORTISONE [Suspect]
     Active Substance: CORTISONE
     Indication: Stenosis
     Route: 065
  4. LIDOCAINE [Suspect]
     Active Substance: LIDOCAINE

REACTIONS (7)
  - Stenosis [Unknown]
  - Libido decreased [Unknown]
  - Blood glucose increased [Unknown]
  - Fatigue [Unknown]
  - Diarrhoea [Unknown]
  - Feeling hot [Recovering/Resolving]
  - Hot flush [Unknown]
